FAERS Safety Report 9399219 (Version 1)
Quarter: 2013Q3

REPORT INFORMATION
  Report Type: Spontaneous
  Country: US (occurrence: US)
  Receive Date: 20130715
  Receipt Date: 20130715
  Transmission Date: 20140515
  Serious: Yes (Hospitalization)
  Sender: FDA-Public Use
  Company Number: US-SUN PHARMACEUTICAL INDUSTRIES LTD-2013SUN01018

PATIENT
  Age: 59 Year
  Sex: Female

DRUGS (1)
  1. PHENTERMINE HYDROCHLORIDE 37.5 MG TABLET [Suspect]
     Indication: WEIGHT DECREASED
     Dosage: UNK
     Route: 065

REACTIONS (4)
  - Tubulointerstitial nephritis [Recovered/Resolved]
  - Blood pressure increased [None]
  - Dyspnoea [None]
  - Normochromic normocytic anaemia [None]
